FAERS Safety Report 9528938 (Version 2)
Quarter: 2013Q3

REPORT INFORMATION
  Report Type: Spontaneous
  Country: FR (occurrence: FR)
  Receive Date: 20130917
  Receipt Date: 20130917
  Transmission Date: 20140515
  Serious: Yes (Hospitalization)
  Sender: FDA-Public Use
  Company Number: FR-ELI_LILLY_AND_COMPANY-FR201306002039

PATIENT
  Age: 86 Year
  Sex: Male
  Weight: 62 kg

DRUGS (4)
  1. CYMBALTA [Suspect]
     Indication: PAIN
     Dosage: UNK, UNKNOWN
     Route: 048
     Dates: start: 20130523, end: 20130527
  2. MORPHINE [Concomitant]
     Indication: PAIN
     Dosage: 1 DF, UNK
     Route: 065
     Dates: start: 20130523, end: 20130525
  3. LYRICA [Concomitant]
     Indication: PAIN
     Dosage: 125 MG, QD
     Route: 065
     Dates: start: 2009
  4. LOXEN [Concomitant]
     Indication: HYPERTENSION
     Dosage: 100 MG, QD
     Route: 065
     Dates: start: 2010

REACTIONS (7)
  - Aphasia [Recovered/Resolved]
  - Confusional state [Recovered/Resolved]
  - Hyponatraemia [Recovered/Resolved]
  - Sedation [Recovered/Resolved]
  - Vomiting [Recovered/Resolved]
  - Diarrhoea [Recovered/Resolved]
  - Hypertension [Recovered/Resolved]
